FAERS Safety Report 21329240 (Version 2)
Quarter: 2022Q3

REPORT INFORMATION
  Report Type: Spontaneous
  Country: US (occurrence: US)
  Receive Date: 20220913
  Receipt Date: 20220920
  Transmission Date: 20221027
  Serious: Yes (Other)
  Sender: FDA-Public Use
  Company Number: US-PFIZER INC-202201147520

PATIENT
  Age: 62 Year
  Sex: Female

DRUGS (2)
  1. CHANTIX [Suspect]
     Active Substance: VARENICLINE TARTRATE
     Indication: Smoking cessation therapy
     Dosage: UNK
     Dates: start: 2012, end: 2012
  2. CHANTIX [Suspect]
     Active Substance: VARENICLINE TARTRATE
     Dosage: STARTING MONTH PAK (0.5 MG X 11 +) TAKEN AS DIRECTED
     Route: 048

REACTIONS (3)
  - Colorectal cancer stage IV [Not Recovered/Not Resolved]
  - Rectal cancer [Unknown]
  - Hypoacusis [Unknown]

NARRATIVE: CASE EVENT DATE: 20211101
